FAERS Safety Report 16719710 (Version 2)
Quarter: 2019Q3

REPORT INFORMATION
  Report Type: Spontaneous
  Country: BR (occurrence: BR)
  Receive Date: 20190820
  Receipt Date: 20190912
  Transmission Date: 20191005
  Serious: Yes (Other)
  Sender: FDA-Public Use
  Company Number: BR-PFIZER INC-2019306811

PATIENT
  Sex: Male
  Weight: 76 kg

DRUGS (2)
  1. XALATAN [Suspect]
     Active Substance: LATANOPROST
     Dosage: 1 GTT, DAILY (ONE DROP A DAY IN ONE EYE)
  2. XALATAN [Suspect]
     Active Substance: LATANOPROST
     Indication: GLAUCOMA
     Dosage: 1 GTT, DAILY (ONE DROP A DAY IN ONE EYE)
     Dates: start: 2009

REACTIONS (8)
  - Dry eye [Unknown]
  - Arrhythmia [Unknown]
  - Dilatation atrial [Unknown]
  - Product packaging issue [Unknown]
  - Tricuspid valve incompetence [Unknown]
  - Drug ineffective [Recovered/Resolved]
  - Eye pruritus [Unknown]
  - Eye irritation [Recovered/Resolved]

NARRATIVE: CASE EVENT DATE: 2011
